FAERS Safety Report 23690279 (Version 2)
Quarter: 2024Q3

REPORT INFORMATION
  Report Type: Spontaneous
  Country: US (occurrence: US)
  Receive Date: 20240401
  Receipt Date: 20240724
  Transmission Date: 20241017
  Serious: Yes (Other)
  Sender: BRISTOL MYERS SQUIBB
  Company Number: US-BRISTOL-MYERS SQUIBB COMPANY-2024-050318

PATIENT
  Age: 64 Year
  Sex: Male

DRUGS (2)
  1. REVLIMID [Suspect]
     Active Substance: LENALIDOMIDE
     Indication: Plasma cell myeloma
     Dosage: TAKE 1 CAPSULE ORALLY DAILY. TAKE WHOLE WITH WATER, WITH OR WITHOUT FOOD AT APPROXIMATELY THE SAME T
     Route: 048
     Dates: start: 20231108
  2. REVLIMID [Suspect]
     Active Substance: LENALIDOMIDE
     Route: 048
     Dates: start: 202407

REACTIONS (8)
  - Diarrhoea [Unknown]
  - Muscular weakness [Unknown]
  - Muscle fatigue [Unknown]
  - Physical deconditioning [Unknown]
  - Neuropathy peripheral [Unknown]
  - Pain [Unknown]
  - Dizziness [Unknown]
  - Illness [Unknown]
